FAERS Safety Report 16366420 (Version 1)
Quarter: 2019Q3

REPORT INFORMATION
  Report Type: Spontaneous
  Country: US (occurrence: US)
  Receive Date: 20190528
  Receipt Date: 20190528
  Transmission Date: 20191004
  Serious: Yes (Life-Threatening, Hospitalization)
  Sender: FDA-Public Use
  Company Number: None

PATIENT
  Age: 48 Year
  Sex: Female
  Weight: 81.7 kg

DRUGS (3)
  1. JARDIANCE [Suspect]
     Active Substance: EMPAGLIFLOZIN
     Indication: TYPE 2 DIABETES MELLITUS
     Route: 048
     Dates: start: 20181109, end: 20190506
  2. BASAGLAR [Concomitant]
     Active Substance: INSULIN GLARGINE
  3. JANUMET XR 100/1000 [Concomitant]
     Dates: start: 20181109

REACTIONS (7)
  - Escherichia test positive [None]
  - Urinary tract infection bacterial [None]
  - Diabetic ketoacidosis [None]
  - Pyelonephritis [None]
  - Septic shock [None]
  - Candida test positive [None]
  - Blood glucose increased [None]

NARRATIVE: CASE EVENT DATE: 20190506
